FAERS Safety Report 8010936-0 (Version None)
Quarter: 2011Q4

REPORT INFORMATION
  Report Type: 
  Country: None (occurrence: None)
  Receive Date: 20111228
  Receipt Date: 20111214
  Transmission Date: 20120403
  Serious: Yes (Other)
  Sender: FDA-Public Use
  Company Number: JP-ROCHE-1023208

PATIENT
  Age: 54 Year
  Sex: Female

DRUGS (6)
  1. ROHYPNOL [Suspect]
     Indication: SCHIZOPHRENIA
     Dosage: DOSAGE IS UNCERTAIN.
     Route: 048
  2. PEROSPIRONE HYDROCHLORIDE [Suspect]
     Indication: SCHIZOPHRENIA
     Dosage: DOSAGE IS UNCERTAIN.
     Route: 048
  3. MILNACIPRAN HYDROCHLORIDE [Suspect]
     Indication: SCHIZOPHRENIA
     Dosage: DOSAGE IS UNCERTAIN.
     Route: 048
  4. CHLORPROMAZINE HYDROCHLORIDE TAB [Suspect]
     Indication: SCHIZOPHRENIA
     Dosage: DOSAGE IS UNCERTAIN.
     Route: 048
  5. BACLOFEN [Suspect]
     Indication: SCHIZOPHRENIA
     Dosage: DOSAGE IS UNCERTAIN.
     Route: 048
  6. CLONAZEPAM [Suspect]
     Indication: SCHIZOPHRENIA
     Dosage: DOSAGE IS UNCERTAIN.
     Route: 048

REACTIONS (2)
  - NEUROLEPTIC MALIGNANT SYNDROME [None]
  - CARDIOMYOPATHY [None]
